FAERS Safety Report 5533448-2 (Version None)
Quarter: 2007Q4

REPORT INFORMATION
  Report Type: 
  Country: None (occurrence: None)
  Receive Date: 20071204
  Receipt Date: 20071127
  Transmission Date: 20080405
  Serious: Yes (Other)
  Sender: FDA-Public Use
  Company Number: US-JNJFOC-20071109935

PATIENT
  Sex: Male
  Weight: 99.79 kg

DRUGS (6)
  1. REMICADE [Suspect]
     Indication: CROHN'S DISEASE
     Route: 042
  2. VITAMIN CAP [Concomitant]
  3. VITAMIN B-12 [Concomitant]
  4. ASCORBIC ACID [Concomitant]
  5. VITAMIN D [Concomitant]
  6. ALLEGRA D 24 HOUR [Concomitant]

REACTIONS (2)
  - CROHN'S DISEASE [None]
  - TUBERCULOSIS [None]
